FAERS Safety Report 25552573 (Version 2)
Quarter: 2025Q4

REPORT INFORMATION
  Report Type: Spontaneous
  Country: EU (occurrence: EU)
  Receive Date: 20250715
  Receipt Date: 20251017
  Transmission Date: 20260117
  Serious: Yes (Death, Other)
  Sender: AUROBINDO
  Company Number: EU-ABBVIE-6347161

PATIENT
  Age: 73 Year
  Sex: Female

DRUGS (32)
  1. AZACITIDINE [Suspect]
     Active Substance: AZACITIDINE
     Indication: Acute myeloid leukaemia
     Dosage: 139 MILLIGRAM/SQ. METER (138 MG/M2 BSAEND OFCYCLE (7 DAYS))
     Route: 065
     Dates: start: 20250115, end: 20250121
  2. VENETOCLAX [Suspect]
     Active Substance: VENETOCLAX
     Indication: Acute myeloid leukaemia
     Dosage: 100 MILLIGRAM
     Route: 048
     Dates: start: 20250117, end: 20250202
  3. VENETOCLAX [Suspect]
     Active Substance: VENETOCLAX
     Dosage: 100 MILLIGRAM
     Route: 048
     Dates: start: 20250115, end: 20250115
  4. VENETOCLAX [Suspect]
     Active Substance: VENETOCLAX
     Dosage: 200 MILLIGRAM, ONCE A DAY
     Route: 048
     Dates: start: 20250116, end: 20250116
  5. MOVICOL [Concomitant]
     Active Substance: POLYETHYLENE GLYCOL 3350\POTASSIUM CHLORIDE\SODIUM BICARBONATE\SODIUM CHLORIDE
     Indication: Constipation
     Dosage: 13.8 MILLIGRAM
     Route: 048
     Dates: start: 20250117
  6. FILGRASTIM [Concomitant]
     Active Substance: FILGRASTIM
     Indication: Neutropenia
     Dosage: 30 MICROGRAM, ONCE A DAY
     Route: 058
     Dates: start: 20250204
  7. VANCOMYCIN HYDROCHLORIDE [Concomitant]
     Active Substance: VANCOMYCIN HYDROCHLORIDE
     Indication: Antibiotic prophylaxis
     Dosage: 1 GRAM
     Route: 042
     Dates: start: 20250114, end: 20250226
  8. ALLOPURINOL [Concomitant]
     Active Substance: ALLOPURINOL
     Indication: Hyperuricaemia
     Dosage: 300 MILLIGRAM
     Route: 048
     Dates: start: 20250105, end: 20250119
  9. LEVOTHYROXINE SODIUM [Concomitant]
     Active Substance: LEVOTHYROXINE SODIUM
     Indication: Goitre
     Dosage: 150 MICROGRAM, ONCE A DAY
     Route: 048
     Dates: start: 20250105, end: 20250105
  10. LEVOTHYROXINE SODIUM [Concomitant]
     Active Substance: LEVOTHYROXINE SODIUM
     Dosage: 75 MICROGRAM, ONCE A DAY
     Route: 048
     Dates: start: 20250106
  11. MEROPENEM [Concomitant]
     Active Substance: MEROPENEM
     Indication: Antibiotic prophylaxis
     Dosage: 2 GRAM
     Route: 042
     Dates: start: 20250114, end: 20250226
  12. DELORAZEPAM [Concomitant]
     Active Substance: DELORAZEPAM
     Indication: Insomnia
     Dosage: 15
     Route: 048
     Dates: start: 20250127, end: 20250218
  13. PIPERACILLIN SODIUM\TAZOBACTAM SODIUM [Concomitant]
     Active Substance: PIPERACILLIN SODIUM\TAZOBACTAM SODIUM
     Indication: Antibiotic prophylaxis
     Dosage: 4.5 GRAM
     Route: 042
     Dates: start: 20250110, end: 20250114
  14. PIPERACILLIN SODIUM\TAZOBACTAM SODIUM [Concomitant]
     Active Substance: PIPERACILLIN SODIUM\TAZOBACTAM SODIUM
     Dosage: 4.5 MILLIGRAM
     Route: 042
     Dates: start: 20250125, end: 20250204
  15. PIPERACILLIN SODIUM\TAZOBACTAM SODIUM [Concomitant]
     Active Substance: PIPERACILLIN SODIUM\TAZOBACTAM SODIUM
     Dosage: 3.75 GRAM
     Route: 042
     Dates: start: 20250104, end: 20250110
  16. Lamivudin mylan [Concomitant]
     Indication: Hepatitis B
     Dosage: 100 MILLIGRAM
     Route: 048
     Dates: start: 20250113
  17. HYDROCHLOROTHIAZIDE [Concomitant]
     Active Substance: HYDROCHLOROTHIAZIDE
     Indication: Hypertension
     Dosage: 12.5 MILLIGRAM
     Route: 048
     Dates: start: 2015, end: 20250124
  18. MAALOX ANTACID [Concomitant]
     Active Substance: ALUMINUM HYDROXIDE\DIMETHICONE\MAGNESIUM HYDROXIDE
     Indication: Hyperphosphataemia
     Dosage: 10 MILLILITER
     Route: 048
     Dates: start: 20250107, end: 20250118
  19. LACTULOSE [Concomitant]
     Active Substance: LACTULOSE
     Indication: Constipation
     Dosage: 10 MILLILITER
     Route: 048
     Dates: start: 20250108
  20. PANTOPRAZOLE SODIUM [Concomitant]
     Active Substance: PANTOPRAZOLE SODIUM
     Indication: Prophylaxis against gastrointestinal ulcer
     Dosage: 40 MILLIGRAM
     Route: 065
     Dates: start: 20250104
  21. BECLOMETHASONE DIPROPIONATE [Concomitant]
     Active Substance: BECLOMETHASONE DIPROPIONATE
     Indication: Pneumonia
     Dosage: 0.4 MILLIGRAM
     Route: 045
     Dates: start: 20250112, end: 20250121
  22. FLUIMUCIL [Concomitant]
     Active Substance: ACETYLCYSTEINE
     Indication: Product used for unknown indication
     Dosage: 600 MILLIGRAM
     Route: 048
     Dates: start: 20250117, end: 20250302
  23. ZOLPIDEM [Concomitant]
     Active Substance: ZOLPIDEM TARTRATE
     Indication: Insomnia
     Dosage: 10 MILLIGRAM
     Route: 048
     Dates: start: 20250219
  24. IPRATROPIUM BROMIDE [Concomitant]
     Active Substance: IPRATROPIUM BROMIDE
     Indication: Pneumonia
     Dosage: 0.5, ONCE A DAY
     Route: 045
     Dates: start: 20250112, end: 20250121
  25. ACETAMINOPHEN [Concomitant]
     Active Substance: ACETAMINOPHEN
     Indication: Pain
     Dosage: 1 GRAM
     Route: 042
     Dates: start: 20250104, end: 20250305
  26. ACETAMINOPHEN [Concomitant]
     Active Substance: ACETAMINOPHEN
     Indication: Pyrexia
  27. IRBESARTAN [Concomitant]
     Active Substance: IRBESARTAN
     Indication: Hypertension
     Dosage: 300 MILLIGRAM, ONCE A DAY
     Route: 048
     Dates: start: 2015, end: 20250124
  28. IRBESARTAN [Concomitant]
     Active Substance: IRBESARTAN
     Dosage: 150 MILLIGRAM, ONCE A DAY
     Route: 065
     Dates: start: 20250125
  29. ALBUTEROL [Concomitant]
     Active Substance: ALBUTEROL
     Indication: Pneumonia
     Dosage: 5 DROPS
     Route: 045
     Dates: start: 20250112, end: 20250121
  30. ROSUVASTATIN [Concomitant]
     Active Substance: ROSUVASTATIN
     Indication: Hypercholesterolaemia
     Dosage: 10 MILLIGRAM
     Route: 048
     Dates: start: 2015
  31. FASTURTEC [Concomitant]
     Active Substance: RASBURICASE
     Indication: Hyperuricaemia
     Dosage: 7 MILLIGRAM, ONCE A DAY
     Route: 042
     Dates: start: 20250104, end: 20250104
  32. POTASSIUM CHLORIDE [Concomitant]
     Active Substance: POTASSIUM CHLORIDE
     Indication: Prophylaxis
     Dosage: 40
     Route: 042
     Dates: start: 20250104

REACTIONS (3)
  - Death [Fatal]
  - Disease progression [Fatal]
  - Neutropenia [Not Recovered/Not Resolved]

NARRATIVE: CASE EVENT DATE: 20250204
